FAERS Safety Report 6306949-7 (Version None)
Quarter: 2009Q3

REPORT INFORMATION
  Report Type: 
  Country: None (occurrence: None)
  Receive Date: 20090810
  Receipt Date: 20090724
  Transmission Date: 20100115
  Serious: Yes (Death, Life-Threatening, Hospitalization)
  Sender: FDA-Public Use
  Company Number: 2009001517

PATIENT
  Age: 64 Year
  Sex: Male

DRUGS (7)
  1. TARCEVA [Suspect]
     Indication: BRONCHIOLOALVEOLAR CARCINOMA
     Dosage: (150 MG,QD),ORAL
     Route: 048
     Dates: start: 20080101, end: 20090501
  2. TORSEMIDE [Concomitant]
  3. HYDROCHLOROTHIAZIDE [Concomitant]
  4. L-THYROXIN [Concomitant]
  5. PANTOPRAZOLE SODIUM [Concomitant]
  6. BISOPROLOL FUMARATE [Concomitant]
  7. ACETYLSALICYLIC ACID SRT [Concomitant]

REACTIONS (4)
  - CYANOSIS [None]
  - PNEUMONITIS [None]
  - RESPIRATORY FAILURE [None]
  - SEPSIS [None]
